FAERS Safety Report 21661945 (Version 2)
Quarter: 2022Q4

REPORT INFORMATION
  Report Type: Spontaneous
  Country: PT (occurrence: PT)
  Receive Date: 20221130
  Receipt Date: 20221227
  Transmission Date: 20230112
  Serious: Yes (Death, Other)
  Sender: FDA-Public Use
  Company Number: PT-GILEAD-2022-0606639

PATIENT
  Age: 33 Year
  Sex: Male

DRUGS (3)
  1. TRUVADA [Suspect]
     Active Substance: EMTRICITABINE\TENOFOVIR DISOPROXIL FUMARATE
     Indication: HIV infection
     Route: 065
  2. ZIDOVUDINE [Concomitant]
     Active Substance: ZIDOVUDINE
  3. RITONAVIR [Concomitant]
     Active Substance: RITONAVIR

REACTIONS (13)
  - Progressive multifocal leukoencephalopathy [Fatal]
  - Depressed level of consciousness [Unknown]
  - Weight decreased [Unknown]
  - Abnormal behaviour [Unknown]
  - Pyrexia [Unknown]
  - Disturbance in attention [Unknown]
  - Speech disorder [Unknown]
  - Orthostatic hypotension [Unknown]
  - Trismus [Unknown]
  - Myoclonus [Unknown]
  - Patient uncooperative [Unknown]
  - Viral load increased [Unknown]
  - Treatment noncompliance [Unknown]
